FAERS Safety Report 8512027-9 (Version None)
Quarter: 2012Q3

REPORT INFORMATION
  Report Type: 
  Country: None (occurrence: None)
  Receive Date: 20120716
  Receipt Date: 20120712
  Transmission Date: 20120928
  Serious: Yes (Other)
  Sender: FDA-Public Use
  Company Number: PHFR2012GB003981

PATIENT
  Sex: Female

DRUGS (3)
  1. STRONTIUM RANELATE [Concomitant]
  2. FEMARA [Suspect]
  3. ROPINIROLE [Concomitant]
     Indication: MUSCLE TWITCHING

REACTIONS (2)
  - MUSCLE TWITCHING [None]
  - RESTLESS LEGS SYNDROME [None]
